FAERS Safety Report 8004445-2 (Version None)
Quarter: 2011Q4

REPORT INFORMATION
  Report Type: 
  Country: None (occurrence: None)
  Receive Date: 20111221
  Receipt Date: 20111221
  Transmission Date: 20120403
  Serious: No
  Sender: FDA-Public Use
  Company Number: None

PATIENT
  Age: 68 Year
  Sex: Female
  Weight: 72.5755 kg

DRUGS (1)
  1. AMBIEN [Suspect]
     Indication: SLEEP DISORDER
     Dosage: 1/2 TO ONE NITE 8:30 PM
     Dates: start: 20110922

REACTIONS (3)
  - ROAD TRAFFIC ACCIDENT [None]
  - BACK INJURY [None]
  - LOSS OF CONSCIOUSNESS [None]
